FAERS Safety Report 8219993-X (Version None)
Quarter: 2012Q1

REPORT INFORMATION
  Report Type: 
  Country: None (occurrence: None)
  Receive Date: 20120305
  Receipt Date: 20111108
  Transmission Date: 20120608
  Serious: No
  Sender: FDA-Public Use
  Company Number: 1000025317

PATIENT
  Sex: Male

DRUGS (1)
  1. DALIRESP [Suspect]
     Dosage: (500 MCG)

REACTIONS (1)
  - COUGH [None]
